FAERS Safety Report 9129804 (Version 1)
Quarter: 2013Q1

REPORT INFORMATION
  Report Type: Report from Study
  Country: US (occurrence: US)
  Receive Date: 20130228
  Receipt Date: 20130228
  Transmission Date: 20140127
  Serious: Yes (Other)
  Sender: FDA-Public Use
  Company Number: US-ABBOTT-13P-163-1052467-00

PATIENT
  Age: 48 Year
  Sex: Female

DRUGS (11)
  1. HUMIRA [Suspect]
     Indication: RHEUMATOID ARTHRITIS
  2. PREDNISONE [Concomitant]
     Indication: RHEUMATOID ARTHRITIS
  3. PREDNISONE [Concomitant]
     Indication: CROHN^S DISEASE
  4. FOLIC ACID [Concomitant]
     Indication: VITAMIN SUPPLEMENTATION
  5. VITAMIN D [Concomitant]
     Indication: VITAMIN SUPPLEMENTATION
  6. NEXIUM [Concomitant]
     Indication: GASTRIC ULCER
  7. CELEBREX [Concomitant]
     Indication: ARTHRITIS
  8. VICODIN [Concomitant]
     Indication: PAIN
     Dosage: 5/325 MG 1 EVERY 4 HOURS PRN
  9. FLEXOR PATCH [Concomitant]
     Indication: PAIN
     Dosage: 1 EVERY 12 HOUR PRN
  10. VOLTAREN GEL [Concomitant]
     Indication: PAIN
  11. SKELAXIN [Concomitant]
     Indication: MUSCLE RELAXANT THERAPY
     Dosage: 3 A DAY AS NEEDED

REACTIONS (3)
  - Large intestine perforation [Unknown]
  - Polymyositis [Recovered/Resolved]
  - Depression [Unknown]
